FAERS Safety Report 6133703-1 (Version None)
Quarter: 2009Q1

REPORT INFORMATION
  Report Type: 
  Country: None (occurrence: None)
  Receive Date: 20090326
  Receipt Date: 20090323
  Transmission Date: 20090719
  Serious: Yes (Hospitalization)
  Sender: FDA-Public Use
  Company Number: B0566283A

PATIENT
  Age: 32 Year
  Sex: Male

DRUGS (5)
  1. PAXIL [Suspect]
     Indication: DEPRESSION
     Dosage: 20MG PER DAY
     Route: 048
     Dates: start: 20080101, end: 20081107
  2. DEPAS [Concomitant]
     Route: 048
  3. ROHYPNOL [Concomitant]
     Route: 065
  4. AMOBAN [Concomitant]
     Route: 048
  5. NOCBIN [Concomitant]
     Route: 048

REACTIONS (2)
  - AGGRESSION [None]
  - AGITATION [None]
